FAERS Safety Report 17880753 (Version 1)
Quarter: 2020Q2

REPORT INFORMATION
  Report Type: Report from Study
  Country: IT (occurrence: IT)
  Receive Date: 20200610
  Receipt Date: 20200610
  Transmission Date: 20200714
  Serious: Yes (Other)
  Sender: FDA-Public Use
  Company Number: IT-ROCHE-2615029

PATIENT
  Age: 40 Year
  Sex: Female
  Weight: 79 kg

DRUGS (5)
  1. TAMOXIFENE [TAMOXIFEN] [Concomitant]
     Active Substance: TAMOXIFEN
     Dosage: ONGOING = CHECKED
     Route: 065
     Dates: start: 20191111
  2. TRASTUZUMAB. [Suspect]
     Active Substance: TRASTUZUMAB
     Indication: BREAST CANCER
     Dosage: MOST RECENT DOSE PRIOR TO THE EVENT: 03/SEP/2019
     Route: 042
     Dates: start: 20190612, end: 20190612
  3. ELLENCE [Suspect]
     Active Substance: EPIRUBICIN HYDROCHLORIDE
     Indication: BREAST CANCER
     Dosage: Q3W - EVERY 3 WEEKS
     Route: 042
     Dates: start: 20190308, end: 20190510
  4. CYTOXAN [Suspect]
     Active Substance: CYCLOPHOSPHAMIDE
     Indication: BREAST CANCER
     Dosage: Q3W - EVERY 3 WEEKS
     Route: 042
     Dates: start: 20190308, end: 20190510
  5. TAXOL [Suspect]
     Active Substance: PACLITAXEL
     Indication: BREAST CANCER
     Dosage: MOST RECENT DOSE PRIOR TO THE EVENT: 06/AUG/2019
     Route: 042
     Dates: start: 20190612, end: 20190716

REACTIONS (1)
  - Pneumonia [Recovered/Resolved]

NARRATIVE: CASE EVENT DATE: 20200126
